FAERS Safety Report 4621926-X (Version None)
Quarter: 2005Q1

REPORT INFORMATION
  Report Type: 
  Country: None (occurrence: None)
  Receive Date: 20050329
  Receipt Date: 20041202
  Transmission Date: 20050727
  Serious: Yes (Other)
  Sender: FDA-Public Use
  Company Number: PHBS2004JP16392

PATIENT
  Age: 71 Year
  Sex: Female

DRUGS (6)
  1. DIOVAN [Suspect]
     Indication: HYPERTENSION
     Route: 048
     Dates: end: 20040901
  2. DIOVAN [Suspect]
     Dosage: 40 MG/DAY
     Route: 048
     Dates: start: 20041001
  3. NORVASC [Concomitant]
     Dosage: 5 MG/DAY
     Route: 048
  4. ASASION [Concomitant]
     Dosage: 0.25 MG/DAY
     Route: 048
  5. METOPROLOL TARTRATE [Concomitant]
     Dosage: 20 MG/DAY
     Route: 048
  6. URSO 250 [Concomitant]
     Dosage: 300 MG/DAY
     Route: 048
     Dates: start: 20041004, end: 20041014

REACTIONS (3)
  - CHOLECYSTITIS ACUTE [None]
  - JAUNDICE [None]
  - SWELLING FACE [None]
